FAERS Safety Report 7395656-8 (Version None)
Quarter: 2011Q2

REPORT INFORMATION
  Report Type: 
  Country: None (occurrence: None)
  Receive Date: 20110405
  Receipt Date: 20110315
  Transmission Date: 20111010
  Serious: No
  Sender: FDA-Public Use
  Company Number: US-B.I. PHARMACEUTICALS,INC./RIDGEFIELD-2011-BP-08242BP

PATIENT
  Age: 31 Year
  Sex: Female

DRUGS (2)
  1. ZANTAC 150 [Suspect]
     Indication: DYSPEPSIA
     Dosage: 300 MG
     Route: 048
     Dates: start: 20110308, end: 20110312
  2. ZANTAC 150 [Suspect]
     Route: 048
     Dates: start: 20110312, end: 20110315

REACTIONS (1)
  - CHEST PAIN [None]
